FAERS Safety Report 7207740-X (Version None)
Quarter: 2011Q1

REPORT INFORMATION
  Report Type: 
  Country: None (occurrence: None)
  Receive Date: 20110103
  Receipt Date: 20101222
  Transmission Date: 20110831
  Serious: Yes (Hospitalization)
  Sender: FDA-Public Use
  Company Number: PE-JNJFOC-20101204069

PATIENT
  Age: 75 Year
  Sex: Female

DRUGS (8)
  1. ISOSORBIDE DINITRATE [Concomitant]
     Route: 065
  2. ATORVASTATIN CALCIUM [Interacting]
     Indication: PRODUCT USED FOR UNKNOWN INDICATION
     Dosage: AT NIGHT
     Route: 065
  3. ASPIRIN [Concomitant]
     Route: 065
  4. ATORVASTATIN CALCIUM [Interacting]
     Route: 065
  5. CLOPIDOGREL [Concomitant]
     Route: 065
  6. BISOPROLOL [Concomitant]
     Route: 065
  7. RANITIDINE [Concomitant]
     Route: 065
  8. ITRACONAZOLE [Suspect]
     Indication: ONYCHOMYCOSIS
     Dosage: DURING ONE WEEK IN NOV
     Route: 065

REACTIONS (7)
  - MYOPATHY [None]
  - ALANINE AMINOTRANSFERASE INCREASED [None]
  - BLOOD LACTATE DEHYDROGENASE INCREASED [None]
  - INCORRECT DOSE ADMINISTERED [None]
  - MYALGIA [None]
  - DRUG INTERACTION [None]
  - ASPARTATE AMINOTRANSFERASE INCREASED [None]
